FAERS Safety Report 7428355-4 (Version None)
Quarter: 2011Q2

REPORT INFORMATION
  Report Type: 
  Country: None (occurrence: None)
  Receive Date: 20110421
  Receipt Date: 20110408
  Transmission Date: 20111010
  Serious: Yes (Other)
  Sender: FDA-Public Use
  Company Number: US-CELGENEUS-163-21880-11012265

PATIENT
  Sex: Male

DRUGS (12)
  1. REVLIMID [Suspect]
     Dosage: 10 MILLIGRAM
     Route: 048
     Dates: start: 20091101
  2. AVALIDE [Concomitant]
     Dosage: 150/12.5MG
     Route: 065
  3. DECADRON [Concomitant]
     Route: 065
     Dates: start: 20071201, end: 20081001
  4. L-CARNITINE [Concomitant]
     Dosage: 500 MILLIGRAM
     Route: 065
  5. REVLIMID [Suspect]
     Indication: MULTIPLE MYELOMA
     Dosage: 10-15MG
     Route: 048
     Dates: start: 20071001, end: 20091001
  6. REVLIMID [Suspect]
     Dosage: 25 MILLIGRAM
     Route: 048
     Dates: start: 20110113, end: 20110127
  7. AVAPRO [Concomitant]
     Route: 065
  8. VITAMIN B COMPLEX CAP [Concomitant]
     Dosage: 1 TABLET
     Route: 048
  9. ALPHA LIPOIC ACID [Concomitant]
     Dosage: 300 MILLIGRAM
     Route: 065
  10. AREDIA [Concomitant]
     Route: 065
     Dates: start: 20071001
  11. DECADRON [Concomitant]
     Dosage: 20 MILLIGRAM
     Route: 065
     Dates: start: 20071001
  12. ZOMETA [Concomitant]
     Route: 065
     Dates: end: 20050101

REACTIONS (3)
  - FATIGUE [None]
  - DYSPHONIA [None]
  - OSTEONECROSIS [None]
